FAERS Safety Report 8090917-1 (Version None)
Quarter: 2012Q1

REPORT INFORMATION
  Report Type: 
  Country: None (occurrence: None)
  Receive Date: 20120128
  Receipt Date: 20110717
  Transmission Date: 20120608
  Serious: No
  Sender: FDA-Public Use
  Company Number: US-ABBOTT-11P-163-0839820-00

PATIENT
  Age: 40 Year
  Sex: Female

DRUGS (4)
  1. PILL FOR PAIN [Concomitant]
     Indication: PAIN
  2. HUMIRA [Suspect]
     Indication: ANKYLOSING SPONDYLITIS
     Dosage: 40MG/WEEK FOR 6 WEEKS THEN EVERY 2 WEEKS
     Dates: start: 20110705
  3. SYNTHROID [Concomitant]
     Indication: HYPOTHYROIDISM
     Dosage: 88MCG DAILY
  4. VITAMINS NOS [Concomitant]
     Indication: PRODUCT USED FOR UNKNOWN INDICATION
     Dosage: STATES TAKES LOTS OF VITAMINS

REACTIONS (3)
  - INJECTION SITE PAIN [None]
  - PAIN IN EXTREMITY [None]
  - ARTHRALGIA [None]
